FAERS Safety Report 24861402 (Version 1)
Quarter: 2025Q1

REPORT INFORMATION
  Report Type: Spontaneous
  Country: JP (occurrence: JP)
  Receive Date: 20250120
  Receipt Date: 20250120
  Transmission Date: 20250409
  Serious: Yes (Life-Threatening, Hospitalization, Other)
  Sender: LEADING PHARMA
  Company Number: JP-LEADINGPHARMA-JP-2025LEALIT00014

PATIENT
  Age: 20 Year
  Sex: Female

DRUGS (2)
  1. MEXILETINE HYDROCHLORIDE [Suspect]
     Active Substance: MEXILETINE HYDROCHLORIDE
     Indication: Product used for unknown indication
     Route: 048
  2. CAFFEINE [Suspect]
     Active Substance: CAFFEINE
     Indication: Product used for unknown indication
     Route: 048

REACTIONS (10)
  - Hypokalaemia [Recovering/Resolving]
  - Lactic acidosis [Recovering/Resolving]
  - Ventricular tachycardia [Recovering/Resolving]
  - Heart rate increased [Recovering/Resolving]
  - Coma scale abnormal [Recovering/Resolving]
  - Toxicity to various agents [Recovering/Resolving]
  - Blood pressure decreased [Recovering/Resolving]
  - Drug clearance decreased [Recovering/Resolving]
  - Drug interaction [Unknown]
  - Overdose [Unknown]
